FAERS Safety Report 10482311 (Version 11)
Quarter: 2016Q4

REPORT INFORMATION
  Report Type: Report from Study
  Country: US (occurrence: US)
  Receive Date: 20140929
  Receipt Date: 20161018
  Transmission Date: 20170206
  Serious: Yes (Other)
  Sender: FDA-Public Use
  Company Number: US-SA-2014SA076792

PATIENT
  Age: 46 Year
  Sex: Female

DRUGS (3)
  1. AUBAGIO [Suspect]
     Active Substance: TERIFLUNOMIDE
     Indication: MULTIPLE SCLEROSIS
     Route: 048
     Dates: start: 20140604
  2. AUBAGIO [Suspect]
     Active Substance: TERIFLUNOMIDE
     Indication: MULTIPLE SCLEROSIS
     Route: 048
     Dates: start: 20150210
  3. TECFIDERA [Concomitant]
     Active Substance: DIMETHYL FUMARATE

REACTIONS (48)
  - Pruritus [Unknown]
  - Rash [Unknown]
  - Abnormal faeces [Not Recovered/Not Resolved]
  - Chromaturia [Not Recovered/Not Resolved]
  - Mobility decreased [Unknown]
  - Stress [Unknown]
  - Rash macular [Unknown]
  - Blood urea decreased [Not Recovered/Not Resolved]
  - Paraesthesia [Not Recovered/Not Resolved]
  - Headache [Unknown]
  - Flank pain [Not Recovered/Not Resolved]
  - Visual acuity reduced [Unknown]
  - Asthenia [Unknown]
  - Urine odour abnormal [Not Recovered/Not Resolved]
  - Drug ineffective [Unknown]
  - JC virus infection [Unknown]
  - Multiple sclerosis relapse [Unknown]
  - Pain [Not Recovered/Not Resolved]
  - Fatigue [Not Recovered/Not Resolved]
  - Nasopharyngitis [Unknown]
  - Urine odour abnormal [Not Recovered/Not Resolved]
  - Gastrointestinal pain [Unknown]
  - Abasia [Unknown]
  - Depression [Unknown]
  - Muscle spasms [Unknown]
  - Hepatic enzyme increased [Not Recovered/Not Resolved]
  - Dysphagia [Not Recovered/Not Resolved]
  - Condition aggravated [Not Recovered/Not Resolved]
  - Red blood cell count increased [Not Recovered/Not Resolved]
  - Diarrhoea [Not Recovered/Not Resolved]
  - Discomfort [Unknown]
  - Pyrexia [Unknown]
  - Eye pain [Unknown]
  - Hyperacusis [Unknown]
  - Urticaria [Unknown]
  - Nausea [Not Recovered/Not Resolved]
  - Skin disorder [Unknown]
  - Pain [Unknown]
  - Blood cholesterol increased [Unknown]
  - Alopecia [Not Recovered/Not Resolved]
  - Monocyte count increased [Not Recovered/Not Resolved]
  - Weight decreased [Not Recovered/Not Resolved]
  - Skin lesion [Unknown]
  - Blister [Unknown]
  - Insomnia [Unknown]
  - Hypertension [Unknown]
  - Myalgia [Unknown]
  - Haematocrit increased [Not Recovered/Not Resolved]

NARRATIVE: CASE EVENT DATE: 2014
